FAERS Safety Report 12956323 (Version 3)
Quarter: 2017Q1

REPORT INFORMATION
  Report Type: Spontaneous
  Country: DE (occurrence: DE)
  Receive Date: 20161118
  Receipt Date: 20170127
  Transmission Date: 20170428
  Serious: Yes (Death, Life-Threatening, Hospitalization)
  Sender: FDA-Public Use
  Company Number: DE-JNJFOC-20161113798

PATIENT
  Age: 90 Year
  Sex: Male

DRUGS (14)
  1. GLIMEPIRID [Concomitant]
     Active Substance: GLIMEPIRIDE
     Dosage: STARTED SINCE MONTHS
     Route: 047
     Dates: end: 20141201
  2. TROSPIUM CHLORIDE. [Concomitant]
     Active Substance: TROSPIUM CHLORIDE
     Dosage: 0-0-15-0 MG
     Route: 048
     Dates: start: 20141124, end: 20141201
  3. DIGIMERCK [Suspect]
     Active Substance: DIGITOXIN
     Indication: PRODUCT USED FOR UNKNOWN INDICATION
     Dosage: STARTED SINCE MONTHS - 01-DEC-2016
     Route: 048
     Dates: end: 20141201
  4. MEMANTINE. [Concomitant]
     Active Substance: MEMANTINE
     Route: 065
     Dates: end: 201411
  5. XELEVIA [Concomitant]
     Active Substance: SITAGLIPTIN PHOSPHATE
     Dosage: STARTED SINCE MONTHS; 0-100-0-0 MG
     Route: 048
     Dates: end: 20141201
  6. LIPROLOG [Concomitant]
     Active Substance: INSULIN LISPRO
     Dosage: STARTED SINCE MONTHS; 34-0-20-0 IE
     Route: 058
     Dates: end: 20141201
  7. ZOPICLON [Concomitant]
     Active Substance: ZOPICLONE
     Indication: INSOMNIA
     Dosage: 0-0-7.5-0 MG
     Route: 048
     Dates: start: 20141125, end: 20141201
  8. TOREM [Concomitant]
     Active Substance: TORSEMIDE
     Dosage: STARTED SINCE MONTHS; 20-10-0-0 MG
     Route: 048
     Dates: end: 20141201
  9. ZOPICLON [Concomitant]
     Active Substance: ZOPICLONE
     Indication: INSOMNIA
     Dosage: STARTED SINCE WEEKS
     Route: 048
     Dates: end: 20141124
  10. BISOPROLOL [Concomitant]
     Active Substance: BISOPROLOL
     Dosage: STARTED SINCE MONTHS; 5 MG TWICE DAILY
     Route: 048
     Dates: end: 20141201
  11. RISPERDAL [Suspect]
     Active Substance: RISPERIDONE
     Indication: PRODUCT USED FOR UNKNOWN INDICATION
     Route: 048
     Dates: start: 20141122, end: 20141201
  12. ACETYLSALICYLIC ACID [Concomitant]
     Active Substance: ASPIRIN
     Dosage: 0-100-0-0 MG
     Route: 048
     Dates: start: 20140601, end: 20141201
  13. TAMSULOSIN [Concomitant]
     Active Substance: TAMSULOSIN
     Dosage: STARTED SINCE MONTHS
     Route: 048
     Dates: end: 20141201
  14. RISPERDAL [Suspect]
     Active Substance: RISPERIDONE
     Indication: PRODUCT USED FOR UNKNOWN INDICATION
     Route: 048
     Dates: end: 20141121

REACTIONS (6)
  - Dementia [Unknown]
  - Pulse absent [Fatal]
  - Death [Fatal]
  - Circulatory collapse [Unknown]
  - Apnoea [Fatal]
  - Cyanosis [Fatal]

NARRATIVE: CASE EVENT DATE: 20141201
